FAERS Safety Report 18931042 (Version 2)
Quarter: 2021Q1

REPORT INFORMATION
  Report Type: Report from Study
  Country: US (occurrence: US)
  Receive Date: 20210223
  Receipt Date: 20210310
  Transmission Date: 20210420
  Serious: Yes (Life-Threatening, Hospitalization, Other)
  Sender: FDA-Public Use
  Company Number: US-AGIOS-2102US02533

PATIENT
  Age: 6 Year
  Sex: Male
  Weight: 20 kg

DRUGS (7)
  1. IVOSIDENIB SOLID TUMOUR [Suspect]
     Active Substance: IVOSIDENIB
     Indication: MAFFUCCI SYNDROME
     Dosage: 50 MILLIGRAM, QD
     Route: 048
     Dates: start: 20210210, end: 20210218
  2. MONTELUKAST [Concomitant]
     Active Substance: MONTELUKAST SODIUM
  3. LANSOPRAZOLE. [Concomitant]
     Active Substance: LANSOPRAZOLE
     Dosage: UNK
     Route: 065
     Dates: start: 20210213, end: 20210214
  4. RED BLOOD CELLS [Concomitant]
     Active Substance: HUMAN RED BLOOD CELL
     Route: 065
  5. GABAPENTIN. [Concomitant]
     Active Substance: GABAPENTIN
     Dosage: UNK
     Route: 065
     Dates: start: 20210212, end: 20210218
  6. PANTOPRAZOLE [Concomitant]
     Active Substance: PANTOPRAZOLE
     Dosage: UNK
     Dates: start: 20210215
  7. FLUTICASONE. [Concomitant]
     Active Substance: FLUTICASONE

REACTIONS (5)
  - Haemoglobin decreased [Recovering/Resolving]
  - Hepatic haemorrhage [Recovering/Resolving]
  - Hepatic infarction [Recovering/Resolving]
  - Aspartate aminotransferase increased [Recovering/Resolving]
  - Alanine aminotransferase increased [Recovering/Resolving]

NARRATIVE: CASE EVENT DATE: 20210218
